FAERS Safety Report 6586313-6 (Version None)
Quarter: 2010Q1

REPORT INFORMATION
  Report Type: 
  Country: None (occurrence: None)
  Receive Date: 20100216
  Receipt Date: 20100216
  Transmission Date: 20100710
  Serious: Yes (Life-Threatening, Hospitalization)
  Sender: FDA-Public Use
  Company Number: None

PATIENT
  Sex: Female
  Weight: 68.0396 kg

DRUGS (6)
  1. NOVANTRONE [Suspect]
     Dates: start: 20080227
  2. NOVANTRONE [Suspect]
     Dates: start: 20080407
  3. NOVANTRONE [Suspect]
     Dates: start: 20080701
  4. NOVANTRONE [Suspect]
     Dates: start: 20081001
  5. NOVANTRONE [Suspect]
     Dates: start: 20090107
  6. NOVANTRONE [Suspect]
     Dates: start: 20090415

REACTIONS (2)
  - GENERAL PHYSICAL CONDITION ABNORMAL [None]
  - MENTAL IMPAIRMENT [None]
